FAERS Safety Report 7090260-3 (Version None)
Quarter: 2010Q4

REPORT INFORMATION
  Report Type: 
  Country: None (occurrence: None)
  Receive Date: 20101109
  Receipt Date: 20100914
  Transmission Date: 20110411
  Serious: No
  Sender: FDA-Public Use
  Company Number: A0878712A

PATIENT
  Age: 73 Year
  Sex: Male

DRUGS (1)
  1. HYCAMTIN [Suspect]
     Dosage: 3.25MG CYCLIC
     Route: 048

REACTIONS (2)
  - DRUG ADMINISTRATION ERROR [None]
  - INCORRECT PRODUCT STORAGE [None]
